FAERS Safety Report 7081537-6 (Version None)
Quarter: 2010Q4

REPORT INFORMATION
  Report Type: 
  Country: None (occurrence: None)
  Receive Date: 20101103
  Receipt Date: 20101026
  Transmission Date: 20110411
  Serious: Yes (Hospitalization, Disabling, Other)
  Sender: FDA-Public Use
  Company Number: US-MERCK-0805USA00693

PATIENT
  Age: 69 Year
  Sex: Female
  Weight: 68 kg

DRUGS (8)
  1. FOSAMAX [Suspect]
     Indication: OSTEOPOROSIS
     Route: 048
     Dates: start: 19960101, end: 20060101
  2. FOSAMAX [Suspect]
     Route: 048
     Dates: start: 20000701
  3. FOSAMAX [Suspect]
     Route: 048
     Dates: start: 19970908, end: 20010312
  4. FOSAMAX [Suspect]
     Route: 048
     Dates: start: 20010330
  5. [THERAPY UNSPECIFIED] [Concomitant]
     Indication: HYPERTENSION
     Route: 065
     Dates: start: 20000401
  6. [THERAPY UNSPECIFIED] [Concomitant]
     Indication: BLOOD CHOLESTEROL INCREASED
     Route: 065
     Dates: start: 20060101, end: 20070101
  7. DIDRONEL [Concomitant]
     Indication: OSTEOPOROSIS
     Route: 065
     Dates: start: 19960123, end: 19970901
  8. ALENDRONATE SODIUM [Suspect]
     Indication: OSTEOPOROSIS POSTMENOPAUSAL
     Route: 048
     Dates: start: 20090407

REACTIONS (63)
  - AMNESIA [None]
  - ANXIETY [None]
  - ARTHRITIS [None]
  - ARTHROPATHY [None]
  - BLOOD CREATINE PHOSPHOKINASE INCREASED [None]
  - BLOOD ELECTROLYTES DECREASED [None]
  - BRAIN CONTUSION [None]
  - BURSITIS [None]
  - CARDIAC FAILURE [None]
  - CARDIAC FAILURE CONGESTIVE [None]
  - CERUMEN IMPACTION [None]
  - CONTUSION [None]
  - CORONARY ARTERY DISEASE [None]
  - DECUBITUS ULCER [None]
  - DEHYDRATION [None]
  - DIARRHOEA [None]
  - DIVERTICULUM [None]
  - ECCHYMOSIS [None]
  - ESSENTIAL HYPERTENSION [None]
  - FACE INJURY [None]
  - FALL [None]
  - FEMUR FRACTURE [None]
  - FIBROCYSTIC BREAST DISEASE [None]
  - FISTULA [None]
  - FRACTURE [None]
  - GASTROENTERITIS SALMONELLA [None]
  - GASTROENTERITIS VIRAL [None]
  - HAEMORRHOIDS [None]
  - HEAD INJURY [None]
  - HIP FRACTURE [None]
  - HYPERCHOLESTEROLAEMIA [None]
  - HYPERLIPIDAEMIA [None]
  - HYPERTENSION [None]
  - HYPOKALAEMIA [None]
  - INFLUENZA [None]
  - INTRACRANIAL HAEMATOMA [None]
  - JOINT SWELLING [None]
  - LEFT VENTRICULAR FAILURE [None]
  - LIMB DEFORMITY [None]
  - LOSS OF CONSCIOUSNESS [None]
  - MENTAL DISORDER [None]
  - MULTIPLE INJURIES [None]
  - ORAL INFECTION [None]
  - OSTEONECROSIS OF JAW [None]
  - PAPILLOMA [None]
  - PATELLA FRACTURE [None]
  - POST POLIO SYNDROME [None]
  - POST-TRAUMATIC AMNESTIC DISORDER [None]
  - POSTMENOPAUSE [None]
  - PROGRESSIVE MUSCULAR ATROPHY [None]
  - ROAD TRAFFIC ACCIDENT [None]
  - SALMONELLOSIS [None]
  - SCOLIOSIS [None]
  - SEASONAL ALLERGY [None]
  - SKIN LACERATION [None]
  - SKIN ULCER [None]
  - SUBARACHNOID HAEMORRHAGE [None]
  - SWELLING [None]
  - TRAUMATIC BRAIN INJURY [None]
  - UPPER RESPIRATORY TRACT INFECTION [None]
  - VAGINAL STRICTURE [None]
  - VIITH NERVE PARALYSIS [None]
  - VITAMIN D DEFICIENCY [None]
